FAERS Safety Report 18856945 (Version 1)
Quarter: 2021Q1

REPORT INFORMATION
  Report Type: Other
  Country: IN (occurrence: IN)
  Receive Date: 20210208
  Receipt Date: 20210208
  Transmission Date: 20210420
  Serious: Yes (Life-Threatening)
  Sender: FDA-Public Use
  Company Number: IN-B.BRAUN MEDICAL INC.-2106448

PATIENT
  Sex: Female
  Weight: 3.8 kg

DRUGS (1)
  1. DEXTROSE INJECTIONS USP 0264?7510?00 0264?7510?20 [Suspect]
     Active Substance: DEXTROSE
     Indication: HYPOGLYCAEMIA

REACTIONS (1)
  - Drug ineffective [None]
